FAERS Safety Report 23891371 (Version 2)
Quarter: 2024Q3

REPORT INFORMATION
  Report Type: Spontaneous
  Country: US (occurrence: US)
  Receive Date: 20240523
  Receipt Date: 20240816
  Transmission Date: 20241016
  Serious: No
  Sender: BIOCON
  Company Number: US-MIMS-BCONMC-3481

PATIENT

DRUGS (4)
  1. SEMGLEE (INSULIN GLARGINE-YFGN) [Suspect]
     Active Substance: INSULIN GLARGINE-YFGN
     Indication: Type 2 diabetes mellitus
     Dosage: 30 UNITS/ML, AT MORNING
     Route: 065
     Dates: start: 2019
  2. SEMGLEE (INSULIN GLARGINE-YFGN) [Suspect]
     Active Substance: INSULIN GLARGINE-YFGN
     Dosage: 20 UNITS/ML, AT NIGHT
     Route: 065
  3. SEMGLEE (INSULIN GLARGINE-YFGN) [Suspect]
     Active Substance: INSULIN GLARGINE-YFGN
     Dosage: 40 INTERNATIONAL UNIT (IN THE MORNING)
     Route: 065
     Dates: start: 2019
  4. SEMGLEE (INSULIN GLARGINE-YFGN) [Suspect]
     Active Substance: INSULIN GLARGINE-YFGN
     Dosage: 20 INTERNATIONAL UNIT (AT NIGHT)
     Route: 065
     Dates: start: 2019

REACTIONS (2)
  - Device delivery system issue [Unknown]
  - Device defective [Unknown]
